FAERS Safety Report 14612196 (Version 1)
Quarter: 2018Q1

REPORT INFORMATION
  Report Type: Report from Study
  Country: JP (occurrence: JP)
  Receive Date: 20180308
  Receipt Date: 20180308
  Transmission Date: 20180509
  Serious: Yes (Other)
  Sender: FDA-Public Use
  Company Number: JP-ROCHE-2087308

PATIENT
  Age: 29 Year
  Sex: Female

DRUGS (16)
  1. PREDNISOLONE. [Concomitant]
     Active Substance: PREDNISOLONE
     Indication: CENTRAL NERVOUS SYSTEM LYMPHOMA
     Route: 048
  2. RITUXIMAB. [Suspect]
     Active Substance: RITUXIMAB
     Dosage: 10 MG/ML
     Route: 041
  3. CYCLOPHOSPHAMIDE MONOHYDRATE [Concomitant]
     Active Substance: CYCLOPHOSPHAMIDE
     Route: 065
  4. THIOTEPA. [Concomitant]
     Active Substance: THIOTEPA
     Indication: BONE MARROW CONDITIONING REGIMEN
     Route: 065
  5. VINCRISTINE SULFATE. [Concomitant]
     Active Substance: VINCRISTINE SULFATE
     Route: 042
  6. CYCLOPHOSPHAMIDE MONOHYDRATE [Concomitant]
     Active Substance: CYCLOPHOSPHAMIDE
     Indication: CENTRAL NERVOUS SYSTEM LYMPHOMA
     Route: 065
  7. METHYLPREDNISOLONE. [Concomitant]
     Active Substance: METHYLPREDNISOLONE
     Indication: CENTRAL NERVOUS SYSTEM LYMPHOMA
     Dosage: TWICE DAILY ON DAYS 1-3
     Route: 048
  8. METHOTREXATE. [Concomitant]
     Active Substance: METHOTREXATE
     Indication: CENTRAL NERVOUS SYSTEM LYMPHOMA
     Route: 065
  9. VINCRISTINE SULFATE. [Concomitant]
     Active Substance: VINCRISTINE SULFATE
     Indication: CENTRAL NERVOUS SYSTEM LYMPHOMA
     Route: 042
  10. METHOTREXATE. [Concomitant]
     Active Substance: METHOTREXATE
     Route: 065
  11. DOXORUBICIN HYDROCHLORIDE. [Concomitant]
     Active Substance: DOXORUBICIN HYDROCHLORIDE
     Indication: CENTRAL NERVOUS SYSTEM LYMPHOMA
     Route: 042
  12. CYTARABINE. [Concomitant]
     Active Substance: CYTARABINE
     Dosage: EVERY 12 HOURS ON DAYS 1 AND 2
     Route: 042
  13. RITUXIMAB. [Suspect]
     Active Substance: RITUXIMAB
     Indication: CENTRAL NERVOUS SYSTEM LYMPHOMA
     Dosage: 10 MG/ML
     Route: 041
  14. PROCARBAZINE HYDROCHLORIDE [Concomitant]
     Active Substance: PROCARBAZINE HYDROCHLORIDE
     Indication: CENTRAL NERVOUS SYSTEM LYMPHOMA
     Route: 048
  15. CYTARABINE. [Concomitant]
     Active Substance: CYTARABINE
     Indication: CENTRAL NERVOUS SYSTEM LYMPHOMA
     Dosage: EVERY 12 HOURS ON DAYS 2 AND 3
     Route: 042
  16. BUSULFAN. [Concomitant]
     Active Substance: BUSULFAN
     Indication: BONE MARROW CONDITIONING REGIMEN
     Route: 065

REACTIONS (2)
  - Diarrhoea [Unknown]
  - Stomatitis [Unknown]
